FAERS Safety Report 9900949 (Version 1)
Quarter: 2014Q1

REPORT INFORMATION
  Report Type: Report from Study
  Country: US (occurrence: US)
  Receive Date: 20140217
  Receipt Date: 20140217
  Transmission Date: 20141002
  Serious: No
  Sender: FDA-Public Use
  Company Number: US-ABBVIE-13P-163-1123341-00

PATIENT
  Age: 54 Year
  Sex: Male
  Weight: 77.18 kg

DRUGS (4)
  1. SIMCOR [Suspect]
     Indication: HIGH DENSITY LIPOPROTEIN ABNORMAL
     Dosage: EVERY NIGHT
     Dates: start: 201304, end: 20130718
  2. SIMCOR [Suspect]
     Indication: LOW DENSITY LIPOPROTEIN ABNORMAL
  3. VITAMINS [Concomitant]
     Indication: PRODUCT USED FOR UNKNOWN INDICATION
  4. PROSTATE PILL [Concomitant]
     Indication: PRODUCT USED FOR UNKNOWN INDICATION

REACTIONS (7)
  - Poor quality sleep [Recovered/Resolved]
  - Chromaturia [Not Recovered/Not Resolved]
  - Gastric disorder [Recovered/Resolved]
  - Fatigue [Recovered/Resolved]
  - Ocular icterus [Not Recovered/Not Resolved]
  - Decreased appetite [Not Recovered/Not Resolved]
  - Malaise [Not Recovered/Not Resolved]
